FAERS Safety Report 17178381 (Version 1)
Quarter: 2019Q4

REPORT INFORMATION
  Report Type: Spontaneous
  Country: US (occurrence: US)
  Receive Date: 20191219
  Receipt Date: 20191219
  Transmission Date: 20200122
  Serious: No
  Sender: FDA-Public Use
  Company Number: US-ASTRAZENECA-2019SF68318

PATIENT
  Sex: Male
  Weight: 72.6 kg

DRUGS (3)
  1. LOZENGES [Concomitant]
     Active Substance: CAPSICUM OLEORESIN
     Dosage: UNKNOWN
     Route: 065
  2. BIOTENE MOUTH WASH [Concomitant]
     Active Substance: CETYLPYRIDINIUM CHLORIDE
     Indication: TONGUE DISCOMFORT
     Dosage: UNKNOWN
     Route: 048
  3. SYMBICORT [Suspect]
     Active Substance: BUDESONIDE\FORMOTEROL FUMARATE DIHYDRATE
     Indication: CHRONIC OBSTRUCTIVE PULMONARY DISEASE
     Dosage: 60/4.5 MG, 2 PUFFS, TWO TIMES A DAY
     Route: 055

REACTIONS (5)
  - Swollen tongue [Not Recovered/Not Resolved]
  - Dry mouth [Not Recovered/Not Resolved]
  - Tongue discomfort [Not Recovered/Not Resolved]
  - Feeding disorder [Not Recovered/Not Resolved]
  - Therapy cessation [Not Recovered/Not Resolved]
